FAERS Safety Report 11334783 (Version 1)
Quarter: 2015Q3

REPORT INFORMATION
  Report Type: Spontaneous
  Country: JP (occurrence: None)
  Receive Date: 20150731
  Receipt Date: 20150731
  Transmission Date: 20151125
  Serious: Yes (Other)
  Sender: FDA-Public Use
  Company Number: 2015-11852

PATIENT
  Sex: Female
  Weight: 43 kg

DRUGS (1)
  1. AFLIBERCEPT IAI OR SHAM (CODE NOT BROKEN) INJECTION [Suspect]
     Active Substance: AFLIBERCEPT
     Indication: POLYPOIDAL CHOROIDAL VASCULOPATHY
     Route: 031
     Dates: start: 20141006, end: 20141006

REACTIONS (1)
  - Gastric ulcer [None]
